FAERS Safety Report 5199830-0 (Version None)
Quarter: 2007Q1

REPORT INFORMATION
  Report Type: 
  Country: None (occurrence: None)
  Receive Date: 20070105
  Receipt Date: 20061227
  Transmission Date: 20070707
  Serious: Yes (Other)
  Sender: FDA-Public Use
  Company Number: EE-AVENTIS-200623044GDDC

PATIENT
  Sex: Male
  Weight: 4.33 kg

DRUGS (1)
  1. LANTUS [Suspect]
     Indication: DIABETES MELLITUS INSULIN-DEPENDENT
     Route: 064

REACTIONS (7)
  - APGAR SCORE LOW [None]
  - DRUG EXPOSURE DURING PREGNANCY [None]
  - DYSTONIA [None]
  - ERB'S PALSY [None]
  - HYPERBILIRUBINAEMIA [None]
  - LARGE FOR DATES BABY [None]
  - NEONATAL ASPHYXIA [None]
